FAERS Safety Report 25379664 (Version 2)
Quarter: 2025Q2

REPORT INFORMATION
  Report Type: Spontaneous
  Country: ES (occurrence: ES)
  Receive Date: 20250530
  Receipt Date: 20250610
  Transmission Date: 20250716
  Serious: Yes (Other)
  Sender: SANOFI AVENTIS
  Company Number: ES-BIOVITRUM-2025-ES-007375

PATIENT
  Age: 18 Year
  Sex: Male
  Weight: 63 kg

DRUGS (2)
  1. EFMOROCTOCOG ALFA [Suspect]
     Active Substance: EFMOROCTOCOG ALFA
     Indication: Factor VIII deficiency
     Dosage: 2500 IU 3 DAYS/WEEK (MONDAY, WEDNESDAY AND FRIDAY)
     Route: 065
     Dates: start: 2014, end: 2025
  2. EFMOROCTOCOG ALFA [Suspect]
     Active Substance: EFMOROCTOCOG ALFA
     Indication: Factor VIII deficiency
     Dosage: 2500 IU 3 DAYS/WEEK (MONDAY, WEDNESDAY AND FRIDAY)
     Route: 065
     Dates: start: 2014, end: 2025

REACTIONS (7)
  - Haemophilic arthropathy [Unknown]
  - Amyotrophy [Unknown]
  - Haemarthrosis [Unknown]
  - Haemorrhage [Unknown]
  - Synovitis [Unknown]
  - Joint injury [Unknown]
  - Epistaxis [Unknown]
